FAERS Safety Report 8664948 (Version 4)
Quarter: 2013Q4

REPORT INFORMATION
  Report Type: Spontaneous
  Country: US (occurrence: US)
  Receive Date: 20120714
  Receipt Date: 20131101
  Transmission Date: 20140711
  Serious: No
  Sender: FDA-Public Use
  Company Number: US-009507513-1207USA002100

PATIENT
  Sex: Male
  Weight: 93.88 kg

DRUGS (2)
  1. PEGINTRON [Suspect]
     Indication: CHRONIC HEPATITIS C
     Dosage: 150 MICROGRAM, UNK
     Route: 058
     Dates: start: 201111
  2. RIBASPHERE [Suspect]
     Indication: HEPATITIS C
     Dosage: UNK
     Dates: start: 201111, end: 201203

REACTIONS (6)
  - Ageusia [Recovering/Resolving]
  - Product quality issue [Unknown]
  - Weight decreased [Recovering/Resolving]
  - Rash [Recovering/Resolving]
  - Fatigue [Recovering/Resolving]
  - Decreased appetite [Recovering/Resolving]
